FAERS Safety Report 5730849-4 (Version None)
Quarter: 2008Q2

REPORT INFORMATION
  Report Type: 
  Country: None (occurrence: None)
  Receive Date: 20080507
  Receipt Date: 20080423
  Transmission Date: 20081010
  Serious: No
  Sender: FDA-Public Use
  Company Number: CH-PFIZER INC-2006012220

PATIENT
  Age: 44 Year
  Sex: Female
  Weight: 60 kg

DRUGS (8)
  1. NEURONTIN [Suspect]
     Indication: NEURALGIA
     Dosage: DAILY DOSE:2700MG
     Route: 065
  2. MORPHINE [Interacting]
     Indication: POSTOPERATIVE ANALGESIA
     Dosage: TEXT:UNKNOWN-FREQ:UNKNOWN
     Route: 065
  3. PARACETAMOL [Concomitant]
     Route: 065
  4. PROPOFOL [Concomitant]
     Route: 065
     Dates: start: 20051206, end: 20051206
  5. FENTANYL [Concomitant]
     Route: 065
     Dates: start: 20051206, end: 20051206
  6. ATRACURIUM BESYLATE [Concomitant]
     Route: 065
     Dates: start: 20051206, end: 20051206
  7. CLONIDINE [Concomitant]
     Route: 065
     Dates: start: 20051206, end: 20051206
  8. REMERON [Concomitant]
     Route: 065

REACTIONS (1)
  - NO ADVERSE EVENT [None]
